FAERS Safety Report 18617712 (Version 1)
Quarter: 2020Q4

REPORT INFORMATION
  Report Type: Spontaneous
  Country: US (occurrence: US)
  Receive Date: 20201215
  Receipt Date: 20201215
  Transmission Date: 20210114
  Serious: Yes (Other)
  Sender: FDA-Public Use
  Company Number: US-009507513-2012USA005391

PATIENT

DRUGS (8)
  1. PRAVASTATIN. [Concomitant]
     Active Substance: PRAVASTATIN
     Dosage: UNK
  2. ACTONEL [Suspect]
     Active Substance: RISEDRONATE SODIUM
     Dosage: 150 MG ONCE MONTHLY
     Route: 048
     Dates: start: 20081224, end: 20090926
  3. FLORICAL [Concomitant]
     Active Substance: DIETARY SUPPLEMENT
     Indication: OTOSCLEROSIS
     Dosage: UNK
  4. BONIVA [Suspect]
     Active Substance: IBANDRONATE SODIUM
     Dosage: 150 MG, ONCE MONTHLY
     Route: 048
     Dates: start: 20090926, end: 201010
  5. FOSAMAX [Suspect]
     Active Substance: ALENDRONATE SODIUM
     Indication: OTOSCLEROSIS
     Dosage: 10 MILLIGRAM, QD (10 MG DAILY)
     Route: 048
     Dates: start: 20030221, end: 20030614
  6. ZETIA [Concomitant]
     Active Substance: EZETIMIBE
     Dosage: UNK
  7. BONIVA [Suspect]
     Active Substance: IBANDRONATE SODIUM
     Indication: OTOSCLEROSIS
     Dosage: 150 MG, ONCE MONTHLY
     Route: 048
     Dates: start: 20060619, end: 20081224
  8. ACTONEL [Suspect]
     Active Substance: RISEDRONATE SODIUM
     Indication: OTOSCLEROSIS
     Dosage: 5 MG, UNKNOWN FREQUENCY
     Route: 048
     Dates: start: 20050205, end: 20060619

REACTIONS (7)
  - Fracture nonunion [Not Recovered/Not Resolved]
  - Pain in extremity [Unknown]
  - Stress fracture [Not Recovered/Not Resolved]
  - Gait disturbance [Unknown]
  - Enchondromatosis [Unknown]
  - Atypical femur fracture [Not Recovered/Not Resolved]
  - Femur fracture [Not Recovered/Not Resolved]

NARRATIVE: CASE EVENT DATE: 2010
